FAERS Safety Report 8436353-7 (Version None)
Quarter: 2012Q2

REPORT INFORMATION
  Report Type: 
  Country: None (occurrence: None)
  Receive Date: 20120607
  Receipt Date: 20120607
  Transmission Date: 20120825
  Serious: Yes (Disabling)
  Sender: FDA-Public Use
  Company Number: None

PATIENT
  Sex: Male
  Weight: 104.5 kg

DRUGS (1)
  1. PROPECIA [Suspect]
     Dosage: 1MG DAILY

REACTIONS (8)
  - ARTHRALGIA [None]
  - MYALGIA [None]
  - PENILE SIZE REDUCED [None]
  - ANXIETY [None]
  - INSOMNIA [None]
  - PANIC ATTACK [None]
  - LIBIDO DECREASED [None]
  - MUSCLE MASS [None]
